FAERS Safety Report 9289237 (Version 1)
Quarter: 2013Q2

REPORT INFORMATION
  Report Type: Spontaneous
  Country: CA (occurrence: None)
  Receive Date: 20130510
  Receipt Date: 20130510
  Transmission Date: 20140414
  Serious: Yes (Other)
  Sender: FDA-Public Use
  Company Number: 2013P1005167

PATIENT
  Age: 68 Year
  Sex: Female

DRUGS (1)
  1. AZO [Suspect]
     Indication: URINARY TRACT INFECTION
     Dosage: 1-2 TABLET; PRN; PO
     Dates: start: 20130415, end: 20130416

REACTIONS (5)
  - Loss of consciousness [None]
  - Fall [None]
  - Feeling abnormal [None]
  - Fear [None]
  - Dehydration [None]
